FAERS Safety Report 6359043-3 (Version None)
Quarter: 2009Q3

REPORT INFORMATION
  Report Type: 
  Country: None (occurrence: None)
  Receive Date: 20090917
  Receipt Date: 20090904
  Transmission Date: 20100115
  Serious: Yes (Hospitalization)
  Sender: FDA-Public Use
  Company Number: ES-BIOGENIDEC-2009BI028358

PATIENT
  Age: 44 Year
  Sex: Female

DRUGS (5)
  1. TYSABRI [Suspect]
     Indication: MULTIPLE SCLEROSIS
     Route: 042
     Dates: start: 20081021
  2. ANTIDEPRESSANT [Concomitant]
  3. ANTIEPILEPTICS [Concomitant]
  4. CALCIUM [Concomitant]
  5. RISEDRONIC ACID [Concomitant]

REACTIONS (1)
  - ENDOMETRIOSIS [None]
